FAERS Safety Report 6180499-3 (Version None)
Quarter: 2009Q2

REPORT INFORMATION
  Report Type: 
  Country: None (occurrence: None)
  Receive Date: 20090504
  Receipt Date: 20090504
  Transmission Date: 20091009
  Serious: No
  Sender: FDA-Public Use
  Company Number: None

PATIENT
  Age: 35 Year
  Sex: Male
  Weight: 77.1115 kg

DRUGS (1)
  1. TRIAMCINOLONE [Suspect]
     Indication: RASH
     Dosage: APPLY TO AFFECTED AREA TWICE DAILY
     Dates: start: 20090502, end: 20090503

REACTIONS (1)
  - MUSCULAR WEAKNESS [None]
